FAERS Safety Report 12471735 (Version 1)
Quarter: 2016Q2

REPORT INFORMATION
  Report Type: Spontaneous
  Country: US (occurrence: None)
  Receive Date: 20160615
  Receipt Date: 20160615
  Transmission Date: 20160815
  Serious: Yes (Hospitalization)
  Sender: FDA-Public Use
  Company Number: None

PATIENT
  Age: 45 Year
  Sex: Female
  Weight: 129.7 kg

DRUGS (9)
  1. HYGROTEN [Concomitant]
  2. CATAPRES [Concomitant]
     Active Substance: CLONIDINE HYDROCHLORIDE
  3. PERIDEX [Suspect]
     Active Substance: CHLORHEXIDINE GLUCONATE
  4. HYDRALAZINE [Concomitant]
     Active Substance: HYDRALAZINE HYDROCHLORIDE
  5. SYNTHROID [Concomitant]
     Active Substance: LEVOTHYROXINE SODIUM
  6. PEPCID [Concomitant]
     Active Substance: FAMOTIDINE
  7. ECOTRIN [Concomitant]
     Active Substance: ASPIRIN
  8. LOSARTAN. [Suspect]
     Active Substance: LOSARTAN
     Indication: HYPERTENSION
     Route: 048
  9. ROCALTROL [Concomitant]
     Active Substance: CALCITRIOL

REACTIONS (1)
  - Angioedema [None]

NARRATIVE: CASE EVENT DATE: 20151024
